FAERS Safety Report 14495306 (Version 1)
Quarter: 2018Q1

REPORT INFORMATION
  Report Type: Spontaneous
  Country: US (occurrence: US)
  Receive Date: 20180206
  Receipt Date: 20180206
  Transmission Date: 20180509
  Serious: No
  Sender: FDA-Public Use
  Company Number: US-SMITH AND NEPHEW, INC-2017SMT00038

PATIENT
  Sex: Male
  Weight: 68.27 kg

DRUGS (9)
  1. OXYCONTIN [Concomitant]
     Active Substance: OXYCODONE HYDROCHLORIDE
  2. REGRANEX [Suspect]
     Active Substance: BECAPLERMIN
     Indication: DIABETIC FOOT
     Dosage: UNK UNK, 1X/DAY
     Route: 061
     Dates: start: 20161129, end: 20161227
  3. LEVEMIR [Concomitant]
     Active Substance: INSULIN DETEMIR
  4. METRONIDAZOLE. [Concomitant]
     Active Substance: METRONIDAZOLE
  5. ANDROGEL [Concomitant]
     Active Substance: TESTOSTERONE
  6. COLLAGENASE SANTYL [Suspect]
     Active Substance: COLLAGENASE CLOSTRIDIUM HISTOLYTICUM
     Indication: DIABETIC FOOT
     Dosage: UNK
     Dates: end: 20161227
  7. ESCITALOPRAM OXALATE. [Concomitant]
     Active Substance: ESCITALOPRAM OXALATE
  8. HYDROCODONE-ACETAMINOPHEN [Concomitant]
     Active Substance: ACETAMINOPHEN\HYDROCODONE
  9. DOCUSATE SODIUM. [Concomitant]
     Active Substance: DOCUSATE SODIUM

REACTIONS (1)
  - Drug ineffective [Unknown]
